FAERS Safety Report 5331395-2 (Version None)
Quarter: 2007Q2

REPORT INFORMATION
  Report Type: 
  Country: None (occurrence: None)
  Receive Date: 20070516
  Receipt Date: 20070502
  Transmission Date: 20071010
  Serious: Yes (Death)
  Sender: FDA-Public Use
  Company Number: POMP-10985

PATIENT
  Age: 937 Day
  Sex: Male

DRUGS (3)
  1. MYOZYME [Suspect]
     Indication: GLYCOGEN STORAGE DISEASE TYPE II
     Dosage: 20 MG/KG Q2WKS IV
     Route: 042
     Dates: start: 20060701, end: 20061103
  2. MYOZYME [Suspect]
     Indication: GLYCOGEN STORAGE DISEASE TYPE II
     Dosage: 20 MG/KG QWK IV
     Route: 042
     Dates: start: 20060616, end: 20060721
  3. MYOZYME [Suspect]
     Indication: GLYCOGEN STORAGE DISEASE TYPE II
     Dosage: 20 MG/KG Q2WKS IV
     Route: 042
     Dates: start: 20041201, end: 20060519

REACTIONS (13)
  - ADHESION [None]
  - ANGIOPATHY [None]
  - CARDIAC FAILURE [None]
  - CELL DEATH [None]
  - COLLAPSE OF LUNG [None]
  - DISEASE PROGRESSION [None]
  - EFFUSION [None]
  - EMPHYSEMA [None]
  - GRANULOMATOUS LIVER DISEASE [None]
  - HEPATOMEGALY [None]
  - PERICARDIAL DISEASE [None]
  - PERICARDIAL EFFUSION [None]
  - RENAL TUBULAR DISORDER [None]
